FAERS Safety Report 23977305 (Version 1)
Quarter: 2024Q2

REPORT INFORMATION
  Report Type: Spontaneous
  Country: US (occurrence: None)
  Receive Date: 20240614
  Receipt Date: 20240614
  Transmission Date: 20240716
  Serious: Yes (Other)
  Sender: FDA-Public Use
  Company Number: None

PATIENT
  Age: 33 Year
  Sex: Female
  Weight: 54 kg

DRUGS (1)
  1. EMGALITY [Suspect]
     Active Substance: GALCANEZUMAB-GNLM
     Indication: Migraine
     Dosage: OTHER QUANTITY : 1 INJECTION(S);?OTHER FREQUENCY : EVERY FOUR WEEKS;?
     Route: 058
     Dates: start: 20240226, end: 20240430

REACTIONS (8)
  - Muscle spasms [None]
  - Vaginal haemorrhage [None]
  - Vaginal haemorrhage [None]
  - Premenstrual syndrome [None]
  - Condition aggravated [None]
  - Migraine [None]
  - Mood swings [None]
  - Abdominal distension [None]

NARRATIVE: CASE EVENT DATE: 20240421
